FAERS Safety Report 24021809 (Version 1)
Quarter: 2024Q2

REPORT INFORMATION
  Report Type: Report from Study
  Country: TW (occurrence: TW)
  Receive Date: 20240627
  Receipt Date: 20240627
  Transmission Date: 20240716
  Serious: Yes (Death, Other)
  Sender: FDA-Public Use
  Company Number: TW-009507513-2406TWN005504

PATIENT
  Age: 51 Year
  Sex: Male

DRUGS (2)
  1. PEMBROLIZUMAB [Suspect]
     Active Substance: PEMBROLIZUMAB
     Indication: Lung neoplasm malignant
     Dosage: 200 MG
     Dates: start: 20240321, end: 20240611
  2. GEMCITABINE [Suspect]
     Active Substance: GEMCITABINE
     Indication: Lung neoplasm malignant
     Dosage: UNK
     Dates: start: 20240319

REACTIONS (19)
  - Death [Fatal]
  - Cardiac arrest [Unknown]
  - Pneumothorax [Unknown]
  - Septic shock [Unknown]
  - Bronchial obstruction [Unknown]
  - Abdominal infection [Unknown]
  - Abdominal abscess [Unknown]
  - Large intestine perforation [Unknown]
  - Diverticulitis intestinal haemorrhagic [Unknown]
  - Pneumoperitoneum [Unknown]
  - Peritonitis [Unknown]
  - Pneumonia [Unknown]
  - Hypotension [Unknown]
  - Pleural effusion [Unknown]
  - Candida infection [Unknown]
  - Bladder dilatation [Unknown]
  - Haemorrhoids [Unknown]
  - Central venous catheter removal [Unknown]
  - Lactic acidosis [Unknown]

NARRATIVE: CASE EVENT DATE: 20240101
